FAERS Safety Report 7770696 (Version 3)
Quarter: 2014Q1

REPORT INFORMATION
  Report Type: Spontaneous
  Country: US (occurrence: US)
  Receive Date: 20110124
  Receipt Date: 20140110
  Transmission Date: 20141002
  Serious: Yes (Hospitalization)
  Sender: FDA-Public Use
  Company Number: US-BAYER-2011-006811

PATIENT
  Age: 18 Year
  Sex: Female
  Weight: 68.03 kg

DRUGS (4)
  1. YASMIN [Suspect]
     Indication: PRODUCT USED FOR UNKNOWN INDICATION
     Dosage: UNK
     Route: 048
     Dates: start: 200304, end: 2005
  2. TAGAMET [Concomitant]
     Indication: ABDOMINAL DISCOMFORT
  3. NAPROXEN [Concomitant]
     Dosage: 500 MG, UNK
     Dates: start: 20041115
  4. ZANTAC [Concomitant]

REACTIONS (9)
  - Cholecystitis chronic [None]
  - Gallbladder disorder [None]
  - Injury [None]
  - Pain [None]
  - Emotional distress [None]
  - Anxiety [None]
  - Psychological trauma [None]
  - Fear [None]
  - Vomiting [None]
